FAERS Safety Report 5702846-6 (Version None)
Quarter: 2008Q2

REPORT INFORMATION
  Report Type: 
  Country: None (occurrence: None)
  Receive Date: 20080411
  Receipt Date: 20080408
  Transmission Date: 20081010
  Serious: Yes (Hospitalization)
  Sender: FDA-Public Use
  Company Number: US-ASTRAZENECA-2008AP00657

PATIENT
  Age: 30439 Day
  Sex: Male
  Weight: 51 kg

DRUGS (27)
  1. MEROPENEM [Suspect]
     Indication: PNEUMONIA
     Route: 042
     Dates: start: 20070518, end: 20070525
  2. ZYVOX SOLUTION [Suspect]
     Indication: PNEUMONIA
     Route: 042
     Dates: start: 20070519, end: 20070526
  3. ZYVOX SOLUTION [Suspect]
     Indication: STAPHYLOCOCCAL INFECTION
     Route: 042
     Dates: start: 20070519, end: 20070526
  4. ZYVOX SOLUTION [Suspect]
     Indication: PNEUMONIA STAPHYLOCOCCAL
     Route: 042
     Dates: start: 20070519, end: 20070526
  5. DALACIN S [Suspect]
     Indication: PNEUMONIA STAPHYLOCOCCAL
     Route: 042
     Dates: start: 20070519, end: 20070528
  6. FRAGMIN [Suspect]
     Indication: DISSEMINATED INTRAVASCULAR COAGULATION
     Route: 042
     Dates: start: 20070518
  7. PLETAL [Suspect]
     Indication: ARTERIOSCLEROSIS OBLITERANS
     Route: 048
     Dates: end: 20070530
  8. SAXIZON [Suspect]
     Indication: SEPSIS
     Route: 042
     Dates: start: 20070519
  9. NORADRENALINE [Concomitant]
     Dates: start: 20070519, end: 20070520
  10. MIDAZOLAM HCL [Concomitant]
     Dates: start: 20070519
  11. LEPETAN [Concomitant]
     Indication: ANALGESIA
     Dates: start: 20070519
  12. ELASPOL [Concomitant]
     Route: 042
     Dates: start: 20070519, end: 20070601
  13. PLATELETS [Concomitant]
     Indication: PLATELET COUNT DECREASED
     Route: 042
     Dates: start: 20070519, end: 20070519
  14. PLATELETS [Concomitant]
     Route: 042
     Dates: start: 20070524, end: 20070524
  15. RED BLOOD CELLS [Concomitant]
     Route: 042
     Dates: start: 20070519, end: 20070519
  16. FRESH FROZEN PLASMA [Concomitant]
     Route: 042
     Dates: start: 20070519, end: 20070519
  17. MIRACLID [Concomitant]
     Route: 042
     Dates: start: 20070519, end: 20070520
  18. SULPERAZON [Concomitant]
     Route: 042
     Dates: start: 20070517, end: 20070518
  19. MIDAZOLAM HCL [Concomitant]
     Indication: ANALGESIA
     Dates: start: 20070519
  20. ANTHROBIN-P [Concomitant]
     Dates: start: 20070520, end: 20070520
  21. FAMOTIDINE [Concomitant]
     Route: 030
     Dates: start: 20070520, end: 20070520
  22. HUMULIN R [Concomitant]
     Indication: DIABETES MELLITUS
     Route: 058
     Dates: start: 20070520
  23. OMEPRAL [Concomitant]
     Route: 042
     Dates: start: 20070521
  24. FOY [Concomitant]
     Route: 042
     Dates: start: 20070522, end: 20070601
  25. PRODIF [Concomitant]
     Route: 042
     Dates: start: 20070523
  26. CIPROXIN [Concomitant]
     Indication: PSEUDOMONAS INFECTION
     Route: 042
     Dates: start: 20070524, end: 20070527
  27. FUNGUARD [Concomitant]
     Route: 042

REACTIONS (4)
  - DIABETES MELLITUS [None]
  - GASTROINTESTINAL HAEMORRHAGE [None]
  - PLATELET COUNT DECREASED [None]
  - SUPERINFECTION [None]
